FAERS Safety Report 15784779 (Version 8)
Quarter: 2019Q3

REPORT INFORMATION
  Report Type: Spontaneous
  Country: JP (occurrence: JP)
  Receive Date: 20190103
  Receipt Date: 20190830
  Transmission Date: 20191004
  Serious: Yes (Hospitalization, Other)
  Sender: FDA-Public Use
  Company Number: JP-BRISTOL-MYERS SQUIBB COMPANY-BMS-2018-122383

PATIENT
  Age: 69 Year
  Sex: Male
  Weight: 78.6 kg

DRUGS (4)
  1. AMLODIPINE                         /00972402/ [Concomitant]
     Active Substance: AMLODIPINE BESYLATE
     Indication: PRODUCT USED FOR UNKNOWN INDICATION
     Dosage: UNK
     Route: 048
  2. YERVOY [Suspect]
     Active Substance: IPILIMUMAB
     Indication: RENAL CELL CARCINOMA
     Dosage: 82 MILLIGRAM, Q3WK
     Route: 041
     Dates: start: 20181126, end: 20181126
  3. E KEPPRA [Suspect]
     Active Substance: LEVETIRACETAM
     Indication: PRODUCT USED FOR UNKNOWN INDICATION
     Dosage: UNK
     Route: 048
     Dates: end: 20181205
  4. OPDIVO [Suspect]
     Active Substance: NIVOLUMAB
     Indication: RENAL CELL CARCINOMA
     Dosage: 240 MILLIGRAM, Q3WK
     Route: 041
     Dates: start: 20181126, end: 20181126

REACTIONS (13)
  - Paralysis [Unknown]
  - Cardiac failure [Unknown]
  - Liver disorder [Recovering/Resolving]
  - Measles [Unknown]
  - Respiratory tract infection [Unknown]
  - Altered state of consciousness [Unknown]
  - Drug eruption [Recovering/Resolving]
  - Interstitial lung disease [Unknown]
  - Lung infiltration [Unknown]
  - Generalised erythema [Unknown]
  - Brain oedema [Unknown]
  - Pyrexia [Unknown]
  - Pleural effusion [Unknown]

NARRATIVE: CASE EVENT DATE: 20181204
